FAERS Safety Report 7890799-4 (Version None)
Quarter: 2011Q4

REPORT INFORMATION
  Report Type: 
  Country: None (occurrence: None)
  Receive Date: 20111103
  Receipt Date: 20110725
  Transmission Date: 20120403
  Serious: No
  Sender: FDA-Public Use
  Company Number: US-AMGEN-USASP2011037535

PATIENT
  Age: 63 Year
  Sex: Female

DRUGS (4)
  1. MULTI-VITAMINS [Concomitant]
     Route: 048
  2. ENBREL [Suspect]
     Indication: PRODUCT USED FOR UNKNOWN INDICATION
     Dosage: 50 MG, 2 TIMES/WK
     Route: 058
  3. DIOVAN [Concomitant]
     Dosage: 40 MG, UNK
     Route: 048
  4. ASPIRIN [Concomitant]
     Dosage: 81 MG, UNK
     Route: 048

REACTIONS (5)
  - URTICARIA [None]
  - HYPOAESTHESIA [None]
  - PARAESTHESIA ORAL [None]
  - SWELLING [None]
  - HYPERSENSITIVITY [None]
